FAERS Safety Report 13427615 (Version 1)
Quarter: 2017Q2

REPORT INFORMATION
  Report Type: Spontaneous
  Country: IT (occurrence: IT)
  Receive Date: 20170411
  Receipt Date: 20170411
  Transmission Date: 20170830
  Serious: Yes (Hospitalization, Other)
  Sender: FDA-Public Use
  Company Number: IT-MYLANLABS-2017M1021770

PATIENT

DRUGS (3)
  1. HEPARIN [Suspect]
     Active Substance: HEPARIN SODIUM
     Indication: PROPHYLAXIS
     Dosage: FOR 3 DAYS
     Route: 065
  2. WARFARIN [Suspect]
     Active Substance: WARFARIN
     Indication: ATRIAL FIBRILLATION
     Dosage: FOR 10 YEARS
     Route: 065
     Dates: end: 201506
  3. RIVAROXABAN [Suspect]
     Active Substance: RIVAROXABAN
     Indication: ATRIAL FIBRILLATION
     Dosage: 20 MG/DAY
     Route: 065
     Dates: start: 201506

REACTIONS (4)
  - Subarachnoid haemorrhage [Unknown]
  - Paraparesis [Not Recovered/Not Resolved]
  - Spinal subdural haematoma [Recovering/Resolving]
  - Bladder dysfunction [Not Recovered/Not Resolved]

NARRATIVE: CASE EVENT DATE: 201512
